FAERS Safety Report 6689031-9 (Version None)
Quarter: 2010Q2

REPORT INFORMATION
  Report Type: 
  Country: None (occurrence: None)
  Receive Date: 20100420
  Receipt Date: 20100414
  Transmission Date: 20101027
  Serious: Yes (Death, Life-Threatening, Hospitalization)
  Sender: FDA-Public Use
  Company Number: PHHO2010AR00830

PATIENT
  Sex: Male
  Weight: 78 kg

DRUGS (3)
  1. TASIGNA [Suspect]
     Indication: GASTROINTESTINAL STROMAL TUMOUR
     Dosage: 800 MG, QD
     Route: 048
     Dates: start: 20091223, end: 20100108
  2. NSAID'S [Concomitant]
     Indication: PAIN
  3. MARIJUANA [Concomitant]

REACTIONS (12)
  - ATTENTION DEFICIT/HYPERACTIVITY DISORDER [None]
  - CONFUSIONAL STATE [None]
  - DEATH [None]
  - DISORIENTATION [None]
  - DYSPNOEA [None]
  - HYPOXIA [None]
  - LUNG INFILTRATION [None]
  - MALIGNANT NEOPLASM PROGRESSION [None]
  - NERVOUS SYSTEM DISORDER [None]
  - OXYGEN SATURATION ABNORMAL [None]
  - RESPIRATORY ACIDOSIS [None]
  - RESPIRATORY DISORDER [None]
